FAERS Safety Report 18519149 (Version 1)
Quarter: 2020Q4

REPORT INFORMATION
  Report Type: Spontaneous
  Country: US (occurrence: US)
  Receive Date: 20201118
  Receipt Date: 20201118
  Transmission Date: 20210114
  Serious: Yes (Other)
  Sender: FDA-Public Use
  Company Number: US-PFIZER INC-2019-06653

PATIENT
  Age: 64 Year
  Sex: Male
  Weight: 132.88 kg

DRUGS (7)
  1. SYNTHROID [Concomitant]
     Active Substance: LEVOTHYROXINE SODIUM
     Dosage: UNK
  2. KENALOG [Concomitant]
     Active Substance: TRIAMCINOLONE ACETONIDE
     Dosage: UNK
  3. BRAFTOVI [Suspect]
     Active Substance: ENCORAFENIB
     Indication: THYROID CANCER
     Dosage: 450 MG, 1X/DAY (QD)
     Route: 048
     Dates: start: 20190525
  4. AFINITOR [Concomitant]
     Active Substance: EVEROLIMUS
     Dosage: UNK
  5. MEKTOVI [Suspect]
     Active Substance: BINIMETINIB
     Indication: THYROID CANCER
     Dosage: 45 MG, 2X/DAY (BID)
     Route: 048
     Dates: start: 20190525
  6. DEXAMETHASONE. [Concomitant]
     Active Substance: DEXAMETHASONE
  7. CHLORHEXIDINE [Concomitant]
     Active Substance: CHLORHEXIDINE

REACTIONS (5)
  - Skin neoplasm excision [Recovered/Resolved]
  - Off label use [Unknown]
  - Diarrhoea [Unknown]
  - Second primary malignancy [Unknown]
  - Squamous cell carcinoma of skin [Unknown]

NARRATIVE: CASE EVENT DATE: 20190525
